FAERS Safety Report 6846030-1 (Version None)
Quarter: 2010Q3

REPORT INFORMATION
  Report Type: 
  Country: None (occurrence: None)
  Receive Date: 20100715
  Receipt Date: 20070904
  Transmission Date: 20110219
  Serious: No
  Sender: FDA-Public Use
  Company Number: US-PFIZER INC-2007074526

PATIENT
  Sex: Female
  Weight: 66.7 kg

DRUGS (6)
  1. CHANTIX [Suspect]
     Indication: SMOKING CESSATION THERAPY
     Route: 048
     Dates: start: 20061001
  2. ALL OTHER THERAPEUTIC PRODUCTS [Concomitant]
  3. DRUG, UNSPECIFIED [Concomitant]
  4. ESTROGENS [Concomitant]
  5. PROGESTERONE [Concomitant]
  6. MULTI-VITAMINS [Concomitant]

REACTIONS (3)
  - APATHY [None]
  - DEPRESSION [None]
  - LETHARGY [None]
